FAERS Safety Report 4695538-6 (Version None)
Quarter: 2005Q2

REPORT INFORMATION
  Report Type: 
  Country: None (occurrence: None)
  Receive Date: 20050523
  Receipt Date: 20050509
  Transmission Date: 20051028
  Serious: Yes (Life-Threatening)
  Sender: FDA-Public Use
  Company Number: 2005AC00705

PATIENT
  Age: 73 Year
  Sex: Female

DRUGS (7)
  1. ROPIVACAINE [Suspect]
     Route: 053
  2. REMIFENTANIL [Suspect]
     Indication: NERVE BLOCK
     Dosage: 0.03 UG KG-1 MIN-1
  3. TORSEMIDE [Concomitant]
  4. ENALAPRIL MALEATE [Concomitant]
  5. ISOSORBIDE DINITRATE [Concomitant]
  6. ACETYLSALICYLIC ACID SRT [Concomitant]
  7. LEVOTHYROXINE SODIUM [Concomitant]
     Indication: THYROIDECTOMY
     Dates: start: 19520101

REACTIONS (2)
  - RESPIRATORY DISTRESS [None]
  - VOCAL CORD PARALYSIS [None]
